FAERS Safety Report 11185829 (Version 1)
Quarter: 2015Q2

REPORT INFORMATION
  Report Type: Spontaneous
  Country: US (occurrence: US)
  Receive Date: 20150612
  Receipt Date: 20150612
  Transmission Date: 20150821
  Serious: No
  Sender: FDA-Public Use
  Company Number: US-GLAXOSMITHKLINE-US2015GSK081552

PATIENT
  Age: 75 Year
  Sex: Female

DRUGS (2)
  1. PROAIR HFA [Concomitant]
     Active Substance: ALBUTEROL SULFATE
  2. ANORO ELLIPTA [Suspect]
     Active Substance: UMECLIDINIUM BROMIDE\VILANTEROL TRIFENATATE
     Indication: CHRONIC OBSTRUCTIVE PULMONARY DISEASE
     Dosage: 1 PUFF(S), U
     Route: 055
     Dates: start: 201504

REACTIONS (6)
  - Drug effect incomplete [Recovering/Resolving]
  - Product quality issue [Unknown]
  - Hypersomnia [Not Recovered/Not Resolved]
  - Gait disturbance [Recovering/Resolving]
  - Medication error [Unknown]
  - Inhalation therapy [Unknown]

NARRATIVE: CASE EVENT DATE: 20150607
